FAERS Safety Report 8159319-3 (Version None)
Quarter: 2012Q1

REPORT INFORMATION
  Report Type: 
  Country: None (occurrence: None)
  Receive Date: 20120217
  Receipt Date: 20120203
  Transmission Date: 20120608
  Serious: Yes (Other)
  Sender: FDA-Public Use
  Company Number: 1000027107

PATIENT
  Age: 43 Year
  Sex: Female
  Weight: 78 kg

DRUGS (8)
  1. MIRTAZAPINE [Concomitant]
  2. RISPERDAL [Concomitant]
  3. LEXAPRO [Suspect]
     Indication: DEPRESSION
     Dosage: 20 MG (20 MG, 1 IN 1 D), ORAL
     Route: 048
     Dates: start: 20111017, end: 20111229
  4. MAGMITT (MAGNESIUM OXIDE) [Concomitant]
  5. GASCON (DIMETICONE) [Concomitant]
  6. U PAN (LORAZEPAM0 [Concomitant]
  7. ROHYPNOL (FLUNITRAZEPAM) [Concomitant]
  8. GASMOTRIN (MOSAPRIDE CITRATE HYDRATE) [Concomitant]

REACTIONS (5)
  - ALANINE AMINOTRANSFERASE INCREASED [None]
  - HEPATIC FUNCTION ABNORMAL [None]
  - ASPARTATE AMINOTRANSFERASE INCREASED [None]
  - BLOOD LACTATE DEHYDROGENASE INCREASED [None]
  - GAMMA-GLUTAMYLTRANSFERASE INCREASED [None]
